FAERS Safety Report 6000758-4 (Version None)
Quarter: 2008Q4

REPORT INFORMATION
  Report Type: 
  Country: None (occurrence: None)
  Receive Date: 20081215
  Receipt Date: 20081204
  Transmission Date: 20090506
  Serious: Yes (Other)
  Sender: FDA-Public Use
  Company Number: US-WYE-H07094708

PATIENT
  Age: 47 Year
  Sex: Female
  Weight: 63.56 kg

DRUGS (2)
  1. ADVIL LIQUI-GELS [Suspect]
     Indication: HEADACHE
     Dosage: 2 LIQUI-GELS AS NEEDED
     Route: 048
     Dates: end: 20081128
  2. ADVIL LIQUI-GELS [Suspect]
     Indication: PROPHYLAXIS

REACTIONS (2)
  - CONVULSION [None]
  - RESPIRATORY ARREST [None]
